FAERS Safety Report 5238294-5 (Version None)
Quarter: 2007Q1

REPORT INFORMATION
  Report Type: 
  Country: None (occurrence: None)
  Receive Date: 20070215
  Receipt Date: 20070202
  Transmission Date: 20070707
  Serious: Yes (Other)
  Sender: FDA-Public Use
  Company Number: PHBS2007IE02063

PATIENT

DRUGS (2)
  1. ETOPOSIDE [Suspect]
     Indication: LUNG NEOPLASM MALIGNANT
     Route: 065
  2. SANDIMMUNE [Suspect]
     Indication: RENAL TRANSPLANT
     Route: 048

REACTIONS (1)
  - BONE MARROW TOXICITY [None]
